FAERS Safety Report 4925513-5 (Version None)
Quarter: 2006Q1

REPORT INFORMATION
  Report Type: 
  Country: None (occurrence: None)
  Receive Date: 20060228
  Receipt Date: 20050309
  Transmission Date: 20060701
  Serious: No
  Sender: FDA-Public Use
  Company Number: US-GLAXOSMITHKLINE-A0549024A

PATIENT

DRUGS (5)
  1. LAMICTAL [Suspect]
     Indication: BIPOLAR DISORDER
     Dosage: 100MG TWICE PER DAY
     Route: 048
     Dates: start: 20050101
  2. ZOLOFT [Concomitant]
  3. ATIVAN [Concomitant]
  4. LITHIUM [Concomitant]
  5. TEMAZEPAM [Concomitant]

REACTIONS (6)
  - ANXIETY [None]
  - DRY SKIN [None]
  - FATIGUE [None]
  - IRRITABILITY [None]
  - MEMORY IMPAIRMENT [None]
  - MUSCLE TWITCHING [None]
